FAERS Safety Report 22788996 (Version 4)
Quarter: 2024Q1

REPORT INFORMATION
  Report Type: Spontaneous
  Country: US (occurrence: US)
  Receive Date: 20230804
  Receipt Date: 20240103
  Transmission Date: 20240409
  Serious: Yes (Other)
  Sender: FDA-Public Use
  Company Number: US-BAYER-2023A106675

PATIENT
  Age: 12 Year
  Sex: Male

DRUGS (3)
  1. KOVALTRY [Suspect]
     Active Substance: ANTIHEMOPHILIC FACTOR, HUMAN RECOMBINANT
     Indication: Contusion
     Dosage: 2000 IU
     Route: 042
  2. KOVALTRY [Suspect]
     Active Substance: ANTIHEMOPHILIC FACTOR, HUMAN RECOMBINANT
     Indication: Haemorrhage
     Dosage: 1 DF, ONCE TO TREAT KNEE BLEEDING
  3. KOVALTRY [Suspect]
     Active Substance: ANTIHEMOPHILIC FACTOR, HUMAN RECOMBINANT
     Indication: Contusion
     Dosage: 2315 UNITS
     Route: 042

REACTIONS (7)
  - Haemarthrosis [Recovered/Resolved]
  - Haemarthrosis [Not Recovered/Not Resolved]
  - Tooth loss [None]
  - Haemarthrosis [Recovered/Resolved]
  - Gingival bleeding [Recovered/Resolved]
  - Joint injury [Recovered/Resolved]
  - Joint injury [None]

NARRATIVE: CASE EVENT DATE: 20230712
